FAERS Safety Report 5809335-9 (Version None)
Quarter: 2008Q3

REPORT INFORMATION
  Report Type: 
  Country: None (occurrence: None)
  Receive Date: 20080714
  Receipt Date: 20080702
  Transmission Date: 20090109
  Serious: Yes (Other)
  Sender: FDA-Public Use
  Company Number: PHHY2008FI12336

PATIENT
  Age: 49 Year
  Sex: Male

DRUGS (1)
  1. ZOMETA [Suspect]
     Indication: OSTEOPOROSIS
     Dosage: UNK
     Dates: start: 20070101

REACTIONS (4)
  - ARTHRALGIA [None]
  - INFLUENZA LIKE ILLNESS [None]
  - PYREXIA [None]
  - SEPSIS [None]
